FAERS Safety Report 7271710-6 (Version None)
Quarter: 2011Q1

REPORT INFORMATION
  Report Type: 
  Country: None (occurrence: None)
  Receive Date: 20110203
  Receipt Date: 20110201
  Transmission Date: 20110831
  Serious: Yes (Other)
  Sender: FDA-Public Use
  Company Number: US-AMGEN-USASP2010009995

PATIENT
  Age: 46 Year
  Sex: Female

DRUGS (3)
  1. NPLATE [Suspect]
     Indication: IDIOPATHIC THROMBOCYTOPENIC PURPURA
     Dosage: 160 A?G, UNK
     Dates: start: 20101013, end: 20101103
  2. NPLATE [Suspect]
     Dates: start: 20101013, end: 20101103
  3. NPLATE [Suspect]
     Dosage: 160 A?G, UNK
     Dates: start: 20101103, end: 20101103

REACTIONS (1)
  - DRUG INEFFECTIVE [None]
